FAERS Safety Report 5128974-4 (Version None)
Quarter: 2006Q4

REPORT INFORMATION
  Report Type: 
  Country: None (occurrence: None)
  Receive Date: 20061016
  Receipt Date: 20061016
  Transmission Date: 20070319
  Serious: Yes (Life-Threatening)
  Sender: FDA-Public Use
  Company Number: None

PATIENT
  Age: 81 Year
  Sex: Male
  Weight: 68.9 kg

DRUGS (3)
  1. FENTANYL [Suspect]
     Indication: SEDATION
     Dosage: IV
     Route: 042
     Dates: start: 20061005, end: 20061005
  2. MIDAZOLAM     1MG/ML [Suspect]
     Indication: SEDATION
     Dosage: IV
     Route: 042
     Dates: start: 20061005, end: 20061005
  3. PROPOFOL [Suspect]

REACTIONS (4)
  - DEPRESSED LEVEL OF CONSCIOUSNESS [None]
  - HYPOTENSION [None]
  - RESPIRATORY DEPRESSION [None]
  - THERAPY NON-RESPONDER [None]
